FAERS Safety Report 9559875 (Version 1)
Quarter: 2013Q3

REPORT INFORMATION
  Report Type: Spontaneous
  Country: US (occurrence: None)
  Receive Date: 20130821
  Receipt Date: 20130821
  Transmission Date: 20140515
  Serious: No
  Sender: FDA-Public Use
  Company Number: 1000046316

PATIENT
  Age: 74 Year
  Sex: Female

DRUGS (17)
  1. TUDORZA PRESSAIR (ACLIDINIUM BROMIDE) (400 MICROGRAM, POWDER) [Suspect]
     Indication: CHRONIC OBSTRUCTIVE PULMONARY DISEASE
     Dosage: 800 MCG (400 MCG, 2 IN 1 D), RESPIRATORY (INHALATION)
     Dates: start: 20130614
  2. BYSTOLIC (NEBIVOLOL HYDROCHLORIDE) (TABLETS) (NEBIVOLOL HYDROCHLORIDE) [Concomitant]
  3. ECOTRIN (ACETYLSALICYLIC ACID) (ACETYLSALICYLIC ACID) [Concomitant]
  4. LASIX (FUROSEMIDE) (FUROSEMIDE) [Concomitant]
  5. POTASSIUM (POTASSIUM) [Concomitant]
  6. VENTOLIN HFA (SALBUTAMOL SULFATE) (SALBUTAMOL SULFATE) [Concomitant]
  7. SYMBICORT (BUDESONIDE W/FORMOTEROL FUMARATE) (BUDESONIDE W/FORMOTEROL FUMARATE) [Concomitant]
  8. FLEXERIL (CYCLOBENZAPRINE) (CYCLOBENZAPRINE) [Concomitant]
  9. SYNTHROID (LEVOTHYROXINE SODIUM) (LEVOTHYROXINE SODIUM) [Concomitant]
  10. NUTROPIN (SOMATROPIN) (SOMATROPIN) [Concomitant]
  11. METFORMIN (METFORMIN) [Concomitant]
  12. OXYGEN (OXYGEN) [Concomitant]
  13. FISH OIL (FISH OIL) [Concomitant]
  14. VIT D (ERGOCALCIFEROL) (ERGOCALCIFEROL) [Concomitant]
  15. VIT C (ASCORBIC ACID) (ASCORBIC ACID) [Concomitant]
  16. CO-ENZYME Q10 (UBIDECARENONE) (UBIDECARENONE) [Concomitant]
  17. VIT B12 (CYANOCOBALAMIN) (CYANOCOBALAMIN) [Concomitant]

REACTIONS (1)
  - Pruritus [None]
